FAERS Safety Report 25877882 (Version 2)
Quarter: 2025Q4

REPORT INFORMATION
  Report Type: Spontaneous
  Country: US (occurrence: US)
  Receive Date: 20251003
  Receipt Date: 20251113
  Transmission Date: 20260118
  Serious: Yes (Other)
  Sender: PFIZER
  Company Number: US-PFIZER INC-PV202500114230

PATIENT

DRUGS (2)
  1. BICILLIN L-A [Suspect]
     Active Substance: PENICILLIN G BENZATHINE
     Dosage: 2 DF, WEEKLY (2.4 MILLION UNITS PER SESSION)
     Dates: start: 20250429, end: 20250429
  2. BICILLIN L-A [Suspect]
     Active Substance: PENICILLIN G BENZATHINE
     Dosage: 2 DF, WEEKLY (2.4 MILLION UNITS PER SESSION)
     Route: 030
     Dates: start: 20250506, end: 20250506

REACTIONS (5)
  - Skin hypertrophy [Unknown]
  - Skin exfoliation [Unknown]
  - Treatment failure [Unknown]
  - Recalled product administered [Unknown]
  - Suspected product contamination [Unknown]
